FAERS Safety Report 13972037 (Version 1)
Quarter: 2017Q3

REPORT INFORMATION
  Report Type: Spontaneous
  Country: US (occurrence: US)
  Receive Date: 20170914
  Receipt Date: 20170914
  Transmission Date: 20171128
  Serious: No
  Sender: FDA-Public Use
  Company Number: US-ASTELLAS-2016US034059

PATIENT
  Age: 94 Year
  Sex: Male

DRUGS (2)
  1. XTANDI [Suspect]
     Active Substance: ENZALUTAMIDE
     Dosage: 2 DF, TWICE DAILY (2 CAPSULES BEFORE MEALS AND 2 CAPSULES AFTER MEALS)
     Route: 048
     Dates: start: 20160901, end: 20160921
  2. XTANDI [Suspect]
     Active Substance: ENZALUTAMIDE
     Indication: PROSTATE CANCER
     Route: 048
     Dates: start: 20160825, end: 20160829

REACTIONS (4)
  - Somnolence [Recovered/Resolved]
  - Wrong technique in product usage process [Unknown]
  - Dysphagia [Recovered/Resolved]
  - Inappropriate schedule of drug administration [Unknown]

NARRATIVE: CASE EVENT DATE: 20160826
